FAERS Safety Report 20349342 (Version 1)
Quarter: 2022Q1

REPORT INFORMATION
  Report Type: Spontaneous
  Country: US (occurrence: US)
  Receive Date: 20220119
  Receipt Date: 20220119
  Transmission Date: 20220423
  Serious: No
  Sender: FDA-Public Use
  Company Number: US-GLENMARK PHARMACEUTICALS-2021GMK054456

PATIENT

DRUGS (1)
  1. ETHINYL ESTRADIOL\NORETHINDRONE [Suspect]
     Active Substance: ETHINYL ESTRADIOL\NORETHINDRONE
     Indication: Hormone replacement therapy
     Dosage: 1 DOSAGE FORM, OD
     Route: 048

REACTIONS (3)
  - Vulvovaginal candidiasis [Unknown]
  - Product use in unapproved indication [Unknown]
  - Intermenstrual bleeding [Unknown]
